FAERS Safety Report 4662912-3 (Version None)
Quarter: 2005Q2

REPORT INFORMATION
  Report Type: 
  Country: None (occurrence: None)
  Receive Date: 20050512
  Receipt Date: 20050425
  Transmission Date: 20051028
  Serious: Yes (Hospitalization, Other)
  Sender: FDA-Public Use
  Company Number: USA050290231

PATIENT
  Age: 58 Year
  Sex: Female
  Weight: 68 kg

DRUGS (6)
  1. HUMALOG [Suspect]
     Indication: DIABETES MELLITUS INSULIN-DEPENDENT
     Dates: start: 19980101
  2. FORTEO [Suspect]
     Indication: MULTIPLE FRACTURES
     Dosage: 20 UG
     Dates: start: 20041201
  3. HUMULIN L [Suspect]
     Indication: DIABETES MELLITUS INSULIN-DEPENDENT
     Dates: end: 19980101
  4. HUMULIN R [Suspect]
     Indication: DIABETES MELLITUS INSULIN-DEPENDENT
     Dates: end: 19980101
  5. ILETIN [Suspect]
     Indication: DIABETES MELLITUS INSULIN-DEPENDENT
  6. MIACALCIN [Concomitant]

REACTIONS (23)
  - BLOOD PRESSURE ABNORMAL [None]
  - BODY HEIGHT DECREASED [None]
  - BONE DISORDER [None]
  - CARDIAC DISORDER [None]
  - CIRCULATORY COLLAPSE [None]
  - CORONARY ARTERIAL STENT INSERTION [None]
  - DIABETIC NEUROPATHY [None]
  - DIZZINESS [None]
  - EYE HAEMORRHAGE [None]
  - FALL [None]
  - FEELING ABNORMAL [None]
  - IMPAIRED HEALING [None]
  - INFLUENZA [None]
  - INTERVERTEBRAL DISC DISORDER [None]
  - LIMB INJURY [None]
  - NECK PAIN [None]
  - OSTEOPENIA [None]
  - PAIN [None]
  - PHARMACEUTICAL PRODUCT COMPLAINT [None]
  - RENAL FAILURE [None]
  - RIB FRACTURE [None]
  - STOMACH DISCOMFORT [None]
  - UPPER LIMB FRACTURE [None]
